FAERS Safety Report 6993943-6 (Version None)
Quarter: 2010Q3

REPORT INFORMATION
  Report Type: 
  Country: None (occurrence: None)
  Receive Date: 20100917
  Receipt Date: 20100412
  Transmission Date: 20110219
  Serious: Yes (Hospitalization)
  Sender: FDA-Public Use
  Company Number: US-ASTRAZENECA-2010SE06917

PATIENT
  Age: 592 Month
  Sex: Male

DRUGS (10)
  1. SEROQUEL [Suspect]
     Indication: SLEEP DISORDER
     Route: 048
     Dates: start: 20060918
  2. SEROQUEL [Suspect]
     Indication: DEPRESSION
     Route: 048
     Dates: start: 20060918
  3. SEROQUEL [Suspect]
     Route: 048
     Dates: start: 20070101, end: 20070701
  4. SEROQUEL [Suspect]
     Route: 048
     Dates: start: 20070101, end: 20070701
  5. TRAZODONE HCL [Concomitant]
     Indication: DEPRESSION
     Dates: start: 20000101, end: 20050101
  6. PAXIL CR [Concomitant]
     Indication: DEPRESSION
     Dates: start: 20000101, end: 20050101
  7. EFFEXOR [Concomitant]
     Indication: DEPRESSION
     Dates: start: 20030101, end: 20040101
  8. KLONOPIN [Concomitant]
     Indication: DEPRESSION
     Dosage: 0.5 PRN
     Dates: start: 20030101, end: 20070101
  9. LEXAPRO [Concomitant]
     Indication: DEPRESSION
     Dates: start: 20030101, end: 20070101
  10. METHADONE [Concomitant]
     Indication: PAIN MANAGEMENT
     Dates: start: 20080501, end: 20080601

REACTIONS (1)
  - PANCREATITIS [None]
